FAERS Safety Report 14846269 (Version 1)
Quarter: 2018Q2

REPORT INFORMATION
  Report Type: Spontaneous
  Country: IT (occurrence: IT)
  Receive Date: 20180504
  Receipt Date: 20180504
  Transmission Date: 20180711
  Serious: Yes (Other)
  Sender: FDA-Public Use
  Company Number: IT-BRISTOL-MYERS SQUIBB COMPANY-BMS-2018-028522

PATIENT
  Age: 12 Year
  Sex: Female

DRUGS (1)
  1. GLUCOPHAGE [Suspect]
     Active Substance: METFORMIN HYDROCHLORIDE
     Indication: HYPERINSULINISM
     Dosage: 500 MG, QD
     Route: 048
     Dates: start: 20180101, end: 20180101

REACTIONS (10)
  - Abdominal pain [Recovering/Resolving]
  - Nausea [Recovering/Resolving]
  - Rash [Recovered/Resolved]
  - Eyelid oedema [Recovering/Resolving]
  - Swelling [Recovered/Resolved]
  - Pruritus [Recovered/Resolved]
  - Urinary retention [Recovering/Resolving]
  - Rash maculo-papular [Recovering/Resolving]
  - Eye pruritus [Recovering/Resolving]
  - Hyperinsulinaemia [Recovering/Resolving]

NARRATIVE: CASE EVENT DATE: 20180101
